FAERS Safety Report 9163734 (Version 1)
Quarter: 2013Q1

REPORT INFORMATION
  Report Type: Report from Study
  Country: US (occurrence: US)
  Receive Date: 20130314
  Receipt Date: 20130314
  Transmission Date: 20140127
  Serious: Yes (Hospitalization)
  Sender: FDA-Public Use
  Company Number: US-ABBOTT-13P-163-1031211-00

PATIENT
  Age: 75 Year
  Sex: Male
  Weight: 89.89 kg

DRUGS (13)
  1. HUMIRA [Suspect]
     Indication: CROHN^S DISEASE
     Dates: start: 20120928, end: 20121207
  2. INSULIN [Concomitant]
     Indication: PRODUCT USED FOR UNKNOWN INDICATION
  3. NORVASC [Concomitant]
     Indication: PRODUCT USED FOR UNKNOWN INDICATION
     Dates: start: 20130305
  4. MAGNESIUM [Concomitant]
     Indication: BLOOD MAGNESIUM DECREASED
  5. LASIX [Concomitant]
     Indication: CARDIAC DISORDER
  6. PENTASA [Concomitant]
     Indication: CROHN^S DISEASE
     Dosage: 6 PER DAY TAKES 2 THREE TIMES A DAY
  7. VITAMIN B12 [Concomitant]
     Indication: PRODUCT USED FOR UNKNOWN INDICATION
  8. VITAMIN OSCAL [Concomitant]
     Indication: BLOOD CALCIUM
  9. COREG [Concomitant]
     Indication: PRODUCT USED FOR UNKNOWN INDICATION
     Dosage: DOES NOT KNOW IF HE IS HYPERTENSIVE
  10. LISINOPRIL [Concomitant]
     Indication: PRODUCT USED FOR UNKNOWN INDICATION
  11. GLYBURIDE (AMRYAL) [Concomitant]
     Indication: DIABETES MELLITUS
  12. METFORMIN [Concomitant]
     Indication: DIABETES MELLITUS
  13. HUMALOG INSULIN [Concomitant]
     Indication: DIABETES MELLITUS
     Dosage: SLIDING SCALE; ACCORDING TO BLOOD SUGAR 3 TIMES PER DAY

REACTIONS (5)
  - Pneumonia [Recovering/Resolving]
  - Abscess [Recovered/Resolved]
  - Crohn^s disease [Unknown]
  - Peripheral embolism [Unknown]
  - Pulmonary embolism [Unknown]
